FAERS Safety Report 9620855 (Version 2)
Quarter: 2013Q4

REPORT INFORMATION
  Report Type: Spontaneous
  Country: JP (occurrence: JP)
  Receive Date: 20131015
  Receipt Date: 20131205
  Transmission Date: 20140711
  Serious: Yes (Hospitalization)
  Sender: FDA-Public Use
  Company Number: JP-ROCHE-1288156

PATIENT
  Age: 49 Year
  Sex: Female

DRUGS (5)
  1. DENOSINE [Suspect]
     Indication: CYTOMEGALOVIRUS INFECTION
     Route: 041
     Dates: start: 20130928, end: 20130930
  2. BACTRAMIN [Suspect]
     Indication: FUNGAL INFECTION
     Route: 048
     Dates: end: 20130930
  3. NEXIUM [Suspect]
     Indication: GASTROOESOPHAGEAL REFLUX DISEASE
     Route: 048
     Dates: end: 20130930
  4. NEXIUM [Suspect]
     Route: 048
  5. PREDNISOLONE [Concomitant]
     Route: 048

REACTIONS (1)
  - Agranulocytosis [Recovered/Resolved]
